FAERS Safety Report 24914537 (Version 4)
Quarter: 2025Q3

REPORT INFORMATION
  Report Type: Report from Study
  Country: JP (occurrence: JP)
  Receive Date: 20250203
  Receipt Date: 20250805
  Transmission Date: 20251020
  Serious: Yes (Death)
  Sender: AMGEN
  Company Number: JP-BEH-2025193242

PATIENT
  Age: 78 Year
  Sex: Male
  Weight: 34.9 kg

DRUGS (16)
  1. AVACOPAN [Suspect]
     Active Substance: AVACOPAN
     Indication: Microscopic polyangiitis
     Dosage: 30 MG, BID
     Route: 048
     Dates: start: 20231123, end: 20240102
  2. PREDNISOLONE [Suspect]
     Active Substance: PREDNISOLONE
     Indication: Microscopic polyangiitis
     Dosage: 35 MG, QD
     Route: 048
     Dates: end: 20231126
  3. PREDNISOLONE [Suspect]
     Active Substance: PREDNISOLONE
     Dosage: 35 MG, QD
     Route: 040
     Dates: start: 20231127, end: 20231222
  4. PREDNISOLONE [Suspect]
     Active Substance: PREDNISOLONE
     Dosage: 30 MG, QD
     Route: 040
     Dates: start: 20231223, end: 20240102
  5. RITUXIMAB [Suspect]
     Active Substance: RITUXIMAB
     Indication: Microscopic polyangiitis
     Route: 042
  6. SULFAMETHOXAZOLE\TRIMETHOPRIM [Concomitant]
     Active Substance: SULFAMETHOXAZOLE\TRIMETHOPRIM
     Indication: Antifungal prophylaxis
     Dosage: 240 MG, QD
     Route: 048
     Dates: end: 20231127
  7. ATOVAQUONE [Concomitant]
     Active Substance: ATOVAQUONE
     Indication: Antifungal prophylaxis
     Dosage: 1500 MG, QD
     Route: 048
     Dates: start: 20231128, end: 20240101
  8. VALGANCICLOVIR HYDROCHLORIDE [Concomitant]
     Active Substance: VALGANCICLOVIR HYDROCHLORIDE
     Route: 048
     Dates: start: 20231207, end: 20231221
  9. LINAGLIPTIN [Concomitant]
     Active Substance: LINAGLIPTIN
     Route: 048
     Dates: end: 20231127
  10. REPAGLINIDE [Concomitant]
     Active Substance: REPAGLINIDE
     Route: 048
     Dates: end: 20231127
  11. CILOSTAZOL [Concomitant]
     Active Substance: CILOSTAZOL
     Route: 048
     Dates: end: 20240101
  12. ELIQUIS [Concomitant]
     Active Substance: APIXABAN
     Route: 048
     Dates: start: 20231228, end: 20240101
  13. ATORVASTATIN [Concomitant]
     Active Substance: ATORVASTATIN
     Route: 048
     Dates: end: 20231127
  14. CEFTRIAXONE SODIUM [Concomitant]
     Active Substance: CEFTRIAXONE SODIUM
     Route: 040
     Dates: start: 20231218, end: 20231221
  15. CLAFORAN [Concomitant]
     Active Substance: CEFOTAXIME SODIUM
     Dates: start: 20231222, end: 20231223
  16. CEFEPIME HYDROCHLORIDE [Concomitant]
     Active Substance: CEFEPIME HYDROCHLORIDE
     Route: 040
     Dates: start: 20231224, end: 20240102

REACTIONS (4)
  - Pneumonia aspiration [Fatal]
  - Hepatic function abnormal [Fatal]
  - Cytomegalovirus infection [Recovering/Resolving]
  - Urinary tract infection [Not Recovered/Not Resolved]

NARRATIVE: CASE EVENT DATE: 20231127
